FAERS Safety Report 7623201-8 (Version None)
Quarter: 2011Q3

REPORT INFORMATION
  Report Type: 
  Country: None (occurrence: None)
  Receive Date: 20110720
  Receipt Date: 20110714
  Transmission Date: 20111222
  Serious: Yes (Death, Hospitalization, Other)
  Sender: FDA-Public Use
  Company Number: PHHY2011BR63437

PATIENT
  Sex: Female

DRUGS (4)
  1. GALVUS [Suspect]
     Indication: TYPE 2 DIABETES MELLITUS
     Dosage: 2 DF, 50 MG (MORNING AND NIGHT)
     Dates: start: 20110101
  2. FRISIUM [Concomitant]
     Indication: EPILEPSY
     Dosage: 2 DF, 20 MG
  3. TEGRETOL-XR [Suspect]
     Dosage: 2 DF, 400 MG
  4. GARDENAL [Concomitant]
     Dosage: 2 DF, 100 MG

REACTIONS (5)
  - DEATH [None]
  - EPILEPSY [None]
  - BRAIN INJURY [None]
  - ABNORMAL BEHAVIOUR [None]
  - FALL [None]
